FAERS Safety Report 21533855 (Version 1)
Quarter: 2022Q4

REPORT INFORMATION
  Report Type: Spontaneous
  Country: US (occurrence: US)
  Receive Date: 20221101
  Receipt Date: 20221101
  Transmission Date: 20230113
  Serious: No
  Sender: FDA-Public Use
  Company Number: US-BAYER-2022A147269

PATIENT

DRUGS (2)
  1. CLARITIN [Suspect]
     Active Substance: LORATADINE
     Indication: Nasopharyngitis
     Dosage: 1 DF
     Route: 048
     Dates: start: 20221019, end: 20221019
  2. CLARITIN [Suspect]
     Active Substance: LORATADINE
     Indication: Hypersensitivity

REACTIONS (1)
  - Drug ineffective [Unknown]
